FAERS Safety Report 15899480 (Version 1)
Quarter: 2019Q1

REPORT INFORMATION
  Report Type: Report from Study
  Country: PL (occurrence: PL)
  Receive Date: 20190201
  Receipt Date: 20190201
  Transmission Date: 20190417
  Serious: Yes (Hospitalization)
  Sender: FDA-Public Use
  Company Number: PL-ROCHE-2183410

PATIENT
  Age: 53 Year
  Sex: Female
  Weight: 58 kg

DRUGS (16)
  1. PARACETAMOL [Concomitant]
     Active Substance: ACETAMINOPHEN
     Route: 065
     Dates: start: 201809, end: 201809
  2. PANTOPRAZOL [Concomitant]
     Active Substance: PANTOPRAZOLE SODIUM
     Route: 048
     Dates: start: 20180919
  3. NATRIUM CHLORATUM [Concomitant]
     Route: 065
     Dates: start: 201809, end: 201809
  4. CHOLECALCIFEROL [Concomitant]
     Active Substance: CHOLECALCIFEROL
     Route: 065
     Dates: start: 201809, end: 201809
  5. NADROPARIN [Concomitant]
     Active Substance: NADROPARIN
     Route: 065
     Dates: start: 201809, end: 201809
  6. ONDANSETRON [Concomitant]
     Active Substance: ONDANSETRON
     Route: 065
     Dates: start: 20180909, end: 20180918
  7. METAMIZOLE [Concomitant]
     Active Substance: METAMIZOLE
     Route: 065
     Dates: start: 201809, end: 201809
  8. AMLODIPINE [Concomitant]
     Active Substance: AMLODIPINE BESYLATE
     Route: 048
     Dates: end: 20181126
  9. ONDANSETRON [Concomitant]
     Active Substance: ONDANSETRON
     Route: 065
     Dates: start: 201809, end: 201809
  10. CHOLECALCIFEROL [Concomitant]
     Active Substance: CHOLECALCIFEROL
     Dosage: 4000 UNIT
     Route: 048
     Dates: start: 20180909, end: 20181126
  11. BISOPROLOL [Concomitant]
     Active Substance: BISOPROLOL
     Route: 048
  12. VANATEX HCT [Concomitant]
     Dosage: (VALSARTAN 160 MG + HYDROCHLOROTHIAZIDE 25 MG)
     Route: 048
     Dates: end: 20181126
  13. SKUDEXA [Concomitant]
     Active Substance: DEXKETOPROFEN\TRAMADOL
     Dosage: (DEXKETOPROFEN 25 MG + TRAMADOL 75 MG)
     Route: 048
     Dates: start: 20180618
  14. OMEPRAZOLE. [Concomitant]
     Active Substance: OMEPRAZOLE
     Route: 065
     Dates: start: 201809, end: 201809
  15. ATEZOLIZUMAB. [Suspect]
     Active Substance: ATEZOLIZUMAB
     Indication: RENAL CELL CARCINOMA
     Dosage: DATE OF MOST RECENT DOSE OF ATEZOLIZUMAB PRIOR TO THE ONSET OF AUTOIMMUNE HYPERTHYROIDISM : 24/AUG/2
     Route: 042
     Dates: start: 20180824
  16. KALIUM CHLORATUM [Concomitant]
     Active Substance: POTASSIUM CHLORIDE
     Route: 065
     Dates: start: 20180909, end: 20180918

REACTIONS (1)
  - Basedow^s disease [Recovered/Resolved with Sequelae]

NARRATIVE: CASE EVENT DATE: 20180909
